FAERS Safety Report 5217258-1 (Version None)
Quarter: 2007Q1

REPORT INFORMATION
  Report Type: 
  Country: None (occurrence: None)
  Receive Date: 20070124
  Receipt Date: 20070111
  Transmission Date: 20070707
  Serious: Yes (Other)
  Sender: FDA-Public Use
  Company Number: AU-BRISTOL-MYERS SQUIBB COMPANY-13639877

PATIENT
  Sex: Female

DRUGS (12)
  1. SERZONE [Suspect]
     Indication: DEPRESSION
     Route: 048
     Dates: start: 19970101, end: 20040101
  2. METHADONE HCL [Concomitant]
     Indication: PAIN
  3. PARACETAMOL [Concomitant]
     Indication: PAIN
  4. MEXITIL [Concomitant]
  5. KALMA [Concomitant]
  6. CLIMARA [Concomitant]
     Indication: HORMONE REPLACEMENT THERAPY
  7. RHINOCORT [Concomitant]
  8. PARIET [Concomitant]
  9. MOTILIUM [Concomitant]
  10. COLOXYL [Concomitant]
  11. CLARITIN [Concomitant]
  12. DURALEX [Concomitant]

REACTIONS (2)
  - MYCOSIS FUNGOIDES [None]
  - SEROTONIN SYNDROME [None]
